FAERS Safety Report 5893492-2 (Version None)
Quarter: 2008Q3

REPORT INFORMATION
  Report Type: 
  Country: None (occurrence: None)
  Receive Date: 20080923
  Receipt Date: 20080918
  Transmission Date: 20090109
  Serious: Yes (Hospitalization)
  Sender: FDA-Public Use
  Company Number: GB-TEVA-177628ISR

PATIENT
  Age: 78 Year
  Sex: Male

DRUGS (1)
  1. FUROSEMIDE [Suspect]
     Indication: RENAL FAILURE
     Dates: start: 20080810, end: 20080813

REACTIONS (3)
  - BLISTER [None]
  - CONFUSIONAL STATE [None]
  - ERYTHEMA MULTIFORME [None]
